FAERS Safety Report 5689910-5 (Version None)
Quarter: 2008Q1

REPORT INFORMATION
  Report Type: 
  Country: None (occurrence: None)
  Receive Date: 20080331
  Receipt Date: 20080331
  Transmission Date: 20080703
  Serious: Yes (Other)
  Sender: FDA-Public Use
  Company Number: None

PATIENT
  Age: 42 Year
  Sex: Male
  Weight: 113.3993 kg

DRUGS (1)
  1. SINGULAIR [Suspect]
     Indication: ASTHMA
     Dosage: 10MG ONCE A DAY PO
     Route: 048

REACTIONS (8)
  - DEPRESSED MOOD [None]
  - DEPRESSION [None]
  - DRUG EFFECT DECREASED [None]
  - EMOTIONAL DISORDER [None]
  - JOB DISSATISFACTION [None]
  - MOOD SWINGS [None]
  - SUICIDAL IDEATION [None]
  - TENSION [None]
